FAERS Safety Report 7312342-0 (Version None)
Quarter: 2011Q1

REPORT INFORMATION
  Report Type: 
  Country: None (occurrence: None)
  Receive Date: 20110214
  Receipt Date: 20110201
  Transmission Date: 20110831
  Serious: Yes (Hospitalization)
  Sender: FDA-Public Use
  Company Number: 2011AP000182

PATIENT
  Age: 86 Year
  Sex: Male

DRUGS (10)
  1. AMLODIPINE [Suspect]
     Dosage: 5 MG; QD
     Route: 048
     Dates: end: 20101221
  2. ASPIRIN [Concomitant]
  3. FLUTICASONE PROPIONATE [Concomitant]
  4. TIOTROPIUM BROMIDE (TIOTROPIUM BROMIDE) [Suspect]
     Indication: CHRONIC OBSTRUCTIVE PULMONARY DISEASE
     Dosage: 18 UG;INH;QD
     Route: 055
  5. HYOSCINE HYDROBROMIDE (HYOSCINE HYDROBROMIDE) [Concomitant]
  6. DOCUSATE (DOCUSATE) [Concomitant]
  7. SALMETEROL XINAFOATE (SALMETEROL XINAFOATE) [Concomitant]
  8. BENDROFLUAZIDE (BENDROFLUMETHAZIDE) [Suspect]
     Indication: HYPERTENSION
     Route: 048
     Dates: end: 20101201
  9. SCOPODERM (HYOSCINE) [Suspect]
     Indication: SALIVARY HYPERSECRETION
     Dosage: 1 DF;TDER
     Route: 062
     Dates: start: 20101214, end: 20101230
  10. LANSOPRAZOLE [Concomitant]

REACTIONS (4)
  - FALL [None]
  - LOSS OF CONSCIOUSNESS [None]
  - DRY MOUTH [None]
  - PRODUCTIVE COUGH [None]
